FAERS Safety Report 7121134-7 (Version None)
Quarter: 2010Q4

REPORT INFORMATION
  Report Type: 
  Country: None (occurrence: None)
  Receive Date: 20101112
  Receipt Date: 20101104
  Transmission Date: 20110411
  Serious: Yes (Other)
  Sender: FDA-Public Use
  Company Number: CTI_01262_2010

PATIENT
  Age: 17 Year
  Sex: Female

DRUGS (1)
  1. GIASION -CEFDITOREN [Suspect]
     Indication: EAR INFECTION
     Dosage: DF
     Dates: start: 20100530, end: 20100605

REACTIONS (1)
  - AMENORRHOEA [None]
